FAERS Safety Report 22233280 (Version 3)
Quarter: 2023Q2

REPORT INFORMATION
  Report Type: Spontaneous
  Country: US (occurrence: US)
  Receive Date: 20230420
  Receipt Date: 20230602
  Transmission Date: 20230722
  Serious: Yes (Other)
  Sender: FDA-Public Use
  Company Number: US-PFIZER INC-PV202300063036

PATIENT
  Age: 67 Year
  Sex: Female
  Weight: 64.399 kg

DRUGS (6)
  1. PREMARIN [Suspect]
     Active Substance: ESTROGENS, CONJUGATED
     Dosage: 1 G, AS NEEDED (TWICE WEEKLY AS NEEDED)
     Route: 067
  2. CYMBALTA [Concomitant]
     Active Substance: DULOXETINE HYDROCHLORIDE
     Dosage: UNK
  3. EMGALITY [Concomitant]
     Active Substance: GALCANEZUMAB-GNLM
     Dosage: UNK
  4. RESTASIS [Concomitant]
     Active Substance: CYCLOSPORINE
     Dosage: UNK
  5. DULOXETINE HYDROCHLORIDE [Concomitant]
     Active Substance: DULOXETINE HYDROCHLORIDE
     Dosage: UNK
  6. CELECOXIB [Concomitant]
     Active Substance: CELECOXIB
     Dosage: UNK

REACTIONS (5)
  - Septic shock [Unknown]
  - Sepsis [Unknown]
  - Migraine [Unknown]
  - Alopecia [Unknown]
  - Off label use [Unknown]
